FAERS Safety Report 11865270 (Version 2)
Quarter: 2016Q1

REPORT INFORMATION
  Report Type: Report from Study
  Country: JP (occurrence: JP)
  Receive Date: 20151223
  Receipt Date: 20160111
  Transmission Date: 20160526
  Serious: Yes (Other)
  Sender: FDA-Public Use
  Company Number: JP-PFIZER INC-2015450525

PATIENT
  Age: 73 Year
  Sex: Female

DRUGS (1)
  1. PEGVISOMANT [Suspect]
     Active Substance: PEGVISOMANT
     Indication: ACROMEGALY
     Dosage: 30 MG, DAILY
     Route: 058
     Dates: start: 20130523

REACTIONS (1)
  - Malignant melanoma [Unknown]
